FAERS Safety Report 14369538 (Version 1)
Quarter: 2018Q1

REPORT INFORMATION
  Report Type: Spontaneous
  Country: US (occurrence: US)
  Receive Date: 20180110
  Receipt Date: 20180110
  Transmission Date: 20180509
  Serious: No
  Sender: FDA-Public Use
  Company Number: US-APOTEX-2017AP013352

PATIENT
  Sex: Female

DRUGS (2)
  1. DULOXETINE HYDROCHLORIDE DELAYED-RELEASE CAPSULES [Suspect]
     Active Substance: DULOXETINE HYDROCHLORIDE
     Indication: FIBROMYALGIA
     Dosage: 2 DF, DAILY
     Route: 065
  2. DULOXETINE. [Suspect]
     Active Substance: DULOXETINE
     Indication: FIBROMYALGIA
     Route: 065

REACTIONS (2)
  - Drug ineffective [Unknown]
  - Condition aggravated [Unknown]
